FAERS Safety Report 7572177-0 (Version None)
Quarter: 2011Q2

REPORT INFORMATION
  Report Type: 
  Country: None (occurrence: None)
  Receive Date: 20110624
  Receipt Date: 20110610
  Transmission Date: 20111010
  Serious: Yes (Other)
  Sender: FDA-Public Use
  Company Number: PHHY2011MX51826

PATIENT
  Sex: Male

DRUGS (1)
  1. TEGRETOL [Suspect]
     Dosage: 4 OR 5 TABLETS (200 MG) PER DAY
     Dates: start: 19740101

REACTIONS (2)
  - TESTICULAR ABSCESS [None]
  - ABSCESS NECK [None]
